FAERS Safety Report 13773008 (Version 2)
Quarter: 2017Q3

REPORT INFORMATION
  Report Type: Spontaneous
  Country: US (occurrence: US)
  Receive Date: 20170720
  Receipt Date: 20170907
  Transmission Date: 20171127
  Serious: Yes (Other)
  Sender: FDA-Public Use
  Company Number: US-SAOL THERAPEUTICS-2017SAO01156

PATIENT
  Age: 27 Year
  Sex: Male

DRUGS (2)
  1. BACLOFEN. [Suspect]
     Active Substance: BACLOFEN
     Indication: CEREBRAL PALSY
  2. BACLOFEN. [Suspect]
     Active Substance: BACLOFEN
     Indication: MUSCLE SPASTICITY
     Dosage: 549.6 ?G, \DAY
     Route: 037
     Dates: start: 20170612

REACTIONS (3)
  - Musculoskeletal stiffness [Unknown]
  - Device failure [Unknown]
  - Device alarm issue [Unknown]

NARRATIVE: CASE EVENT DATE: 20170703
